FAERS Safety Report 7505549-0 (Version None)
Quarter: 2011Q2

REPORT INFORMATION
  Report Type: 
  Country: None (occurrence: None)
  Receive Date: 20110526
  Receipt Date: 20110516
  Transmission Date: 20111010
  Serious: Yes (Other)
  Sender: FDA-Public Use
  Company Number: PHHY2011GR41566

PATIENT
  Age: 43 Year
  Sex: Female

DRUGS (1)
  1. EXTAVIA [Suspect]
     Dosage: UNK

REACTIONS (4)
  - ASTHENIA [None]
  - DEPRESSION [None]
  - FATIGUE [None]
  - GAIT DISTURBANCE [None]
